FAERS Safety Report 20585743 (Version 1)
Quarter: 2022Q1

REPORT INFORMATION
  Report Type: Spontaneous
  Country: FI (occurrence: FI)
  Receive Date: 20220312
  Receipt Date: 20220312
  Transmission Date: 20220423
  Serious: Yes (Other)
  Sender: FDA-Public Use
  Company Number: FI-TEVA-2022-FI-2014862

PATIENT
  Age: 39 Year
  Sex: Female

DRUGS (1)
  1. COPAXONE [Suspect]
     Active Substance: GLATIRAMER ACETATE
     Route: 065

REACTIONS (12)
  - Chest discomfort [Unknown]
  - Oropharyngeal discomfort [Unknown]
  - Swelling face [Unknown]
  - Injection site pruritus [Unknown]
  - Injection site mass [Unknown]
  - Feeling abnormal [Unknown]
  - Paraesthesia [Unknown]
  - Injection site pain [Unknown]
  - Feeling hot [Unknown]
  - Dizziness [Unknown]
  - Abdominal pain lower [Unknown]
  - Injection site induration [Unknown]

NARRATIVE: CASE EVENT DATE: 20200101
